FAERS Safety Report 4508871-5 (Version None)
Quarter: 2004Q4

REPORT INFORMATION
  Report Type: 
  Country: None (occurrence: None)
  Receive Date: 20041123
  Receipt Date: 20040923
  Transmission Date: 20050328
  Serious: Yes (Hospitalization, Other)
  Sender: FDA-Public Use
  Company Number: PHNU2004DE03319

PATIENT
  Sex: Male

DRUGS (8)
  1. MYFORTIC [Suspect]
     Indication: RENAL TRANSPLANT
     Dosage: 360 MG, BID
     Route: 048
     Dates: start: 20040901
  2. SANDIMMUNE [Concomitant]
     Indication: RENAL TRANSPLANT
     Dosage: 225MG/DAY
     Dates: start: 20020101
  3. NORVASC [Concomitant]
     Indication: HYPERTENSION
     Dosage: 5 MG, BID
  4. DIOVAN [Concomitant]
     Indication: HYPERTENSION
     Dosage: 80 MG, QD
     Route: 048
  5. CYNT ^BEIERSDORF^ [Concomitant]
     Indication: HYPERTENSION
     Dosage: .3 MG, QD
     Route: 048
  6. NEXIUM [Concomitant]
     Dosage: 20 MG, QD
     Route: 048
  7. TOREM                                   /GFR/ [Concomitant]
     Indication: HYPERTENSION
     Dosage: 5 MG, QD
     Route: 048
  8. IRON [Suspect]
     Route: 042

REACTIONS (7)
  - AMPUTATION [None]
  - DIABETIC GANGRENE [None]
  - DRUG INTERACTION [None]
  - GASTROINTESTINAL HAEMORRHAGE [None]
  - IRON DEFICIENCY [None]
  - MICROCYTIC ANAEMIA [None]
  - SERUM FERRITIN DECREASED [None]
